FAERS Safety Report 4305013-6 (Version None)
Quarter: 2004Q1

REPORT INFORMATION
  Report Type: 
  Country: None (occurrence: None)
  Receive Date: 20040226
  Receipt Date: 20040128
  Transmission Date: 20041129
  Serious: No
  Sender: FDA-Public Use
  Company Number: US-GLAXOSMITHKLINE-A0496516A

PATIENT
  Sex: Female

DRUGS (1)
  1. WELLBUTRIN XL [Suspect]
     Route: 048

REACTIONS (3)
  - BLOOD PRESSURE DECREASED [None]
  - DIZZINESS [None]
  - HEADACHE [None]
